FAERS Safety Report 23642553 (Version 2)
Quarter: 2024Q2

REPORT INFORMATION
  Report Type: Report from Study
  Country: HR (occurrence: HR)
  Receive Date: 20240318
  Receipt Date: 20240404
  Transmission Date: 20240716
  Serious: Yes (Other)
  Sender: FDA-Public Use
  Company Number: HR-TEVA-VS-3170536

PATIENT
  Age: 75 Year
  Sex: Male

DRUGS (5)
  1. PERINDOPRIL [Interacting]
     Active Substance: PERINDOPRIL
     Indication: Product used for unknown indication
     Route: 065
  2. AMIODARONE [Interacting]
     Active Substance: AMIODARONE
     Indication: Product used for unknown indication
     Route: 065
  3. AMIODARONE [Interacting]
     Active Substance: AMIODARONE
     Indication: Product used for unknown indication
     Dosage: 200 AND 100 MG ALTERNATELY
     Route: 065
  4. RIVAROXABAN [Interacting]
     Active Substance: RIVAROXABAN
     Indication: Atrial fibrillation
     Route: 048
  5. PANTOPRAZOLE [Interacting]
     Active Substance: PANTOPRAZOLE
     Indication: Product used for unknown indication
     Route: 065

REACTIONS (2)
  - Melaena [Recovered/Resolved]
  - Drug interaction [Recovered/Resolved]
